FAERS Safety Report 4533214-0 (Version None)
Quarter: 2004Q4

REPORT INFORMATION
  Report Type: 
  Country: None (occurrence: None)
  Receive Date: 20041220
  Receipt Date: 20041220
  Transmission Date: 20050328
  Serious: Yes (Hospitalization)
  Sender: FDA-Public Use
  Company Number: None

PATIENT
  Age: 22 Year
  Sex: Female
  Weight: 58.9676 kg

DRUGS (1)
  1. DEPO-PROVERA [Suspect]
     Indication: CONTRACEPTION
     Dosage: 1        3 MONTHS   INTRAMUSCU
     Route: 030

REACTIONS (5)
  - FOOT FRACTURE [None]
  - HAND FRACTURE [None]
  - HIP FRACTURE [None]
  - SPINAL COMPRESSION FRACTURE [None]
  - STRESS FRACTURE [None]
